FAERS Safety Report 10231278 (Version 1)
Quarter: 2014Q2

REPORT INFORMATION
  Report Type: Spontaneous
  Country: US (occurrence: None)
  Receive Date: 20140506
  Receipt Date: 20140506
  Transmission Date: 20141212
  Serious: No
  Sender: FDA-Public Use
  Company Number: 1296642

PATIENT
  Sex: Female

DRUGS (1)
  1. AVASTATIN (BEVACIZUMBA) (INFUSION, SOLUTION) [Suspect]
     Indication: NON-SMALL CELL LUNG CANCER
     Route: 042
     Dates: start: 201310, end: 201310

REACTIONS (1)
  - Gastrointestinal perforation [None]
